FAERS Safety Report 7582777-X (Version None)
Quarter: 2011Q2

REPORT INFORMATION
  Report Type: 
  Country: None (occurrence: None)
  Receive Date: 20110627
  Receipt Date: 20110627
  Transmission Date: 20111010
  Serious: Yes (Hospitalization)
  Sender: FDA-Public Use
  Company Number: None

PATIENT
  Age: 58 Year
  Sex: Female
  Weight: 63.5036 kg

DRUGS (1)
  1. TRAMADOL HCL [Suspect]
     Indication: SPINAL OSTEOARTHRITIS
     Dosage: 100MG TID PO
     Route: 048
     Dates: start: 20110616, end: 20110626

REACTIONS (3)
  - CONVULSION [None]
  - LOSS OF CONSCIOUSNESS [None]
  - TRAUMATIC BRAIN INJURY [None]
